FAERS Safety Report 10012287 (Version 2)
Quarter: 2014Q1

REPORT INFORMATION
  Report Type: Spontaneous
  Country: US (occurrence: US)
  Receive Date: 20140314
  Receipt Date: 20140327
  Transmission Date: 20141002
  Serious: Yes (Hospitalization)
  Sender: FDA-Public Use
  Company Number: 2014SP001301

PATIENT
  Age: 61 Year
  Sex: Female
  Weight: 62.34 kg

DRUGS (24)
  1. FLUOROURACIL [Suspect]
     Indication: PANCREATIC CARCINOMA
     Route: 040
     Dates: start: 20140206
  2. FLUOROURACIL [Suspect]
     Indication: PANCREATIC CARCINOMA
     Route: 042
     Dates: start: 20140206
  3. FLUOROURACIL [Suspect]
     Indication: PANCREATIC CARCINOMA
     Route: 040
     Dates: start: 20140220
  4. FLUOROURACIL [Suspect]
     Indication: PANCREATIC CARCINOMA
     Route: 042
     Dates: start: 20140220
  5. IRINOTECAN [Suspect]
     Indication: PANCREATIC CARCINOMA
     Dates: start: 20140206
  6. IRINOTECAN [Suspect]
     Indication: PANCREATIC CARCINOMA
     Dates: start: 20140220
  7. OXALIPLATIN [Suspect]
     Indication: PANCREATIC CARCINOMA
     Dates: start: 20140206
  8. OXALIPLATIN [Suspect]
     Indication: PANCREATIC CARCINOMA
     Dates: start: 20140220
  9. ACETAMINOPHEN [Concomitant]
  10. ALEVE [Concomitant]
  11. CYCLOBENZAPRINE [Concomitant]
  12. DEXAMETHASONE [Concomitant]
  13. BISACODYL [Concomitant]
  14. SUMATRIPTAN [Concomitant]
  15. LIDOCAINE [Concomitant]
  16. OMEPRAZOLE [Concomitant]
  17. ONDANSETRON [Concomitant]
  18. ACETAMINOPHEN [Concomitant]
  19. ASPIRIN [Concomitant]
  20. CAFFEINE [Concomitant]
  21. PRILOCAINE [Concomitant]
  22. PROCHLORPERAZINE [Concomitant]
  23. SIMVASTATIN [Concomitant]
  24. SENNA /00571902/ [Concomitant]

REACTIONS (4)
  - Dehydration [Recovered/Resolved]
  - Nausea [Recovered/Resolved]
  - Vomiting [Recovered/Resolved]
  - Faeces soft [Recovered/Resolved]
